FAERS Safety Report 13758247 (Version 1)
Quarter: 2017Q3

REPORT INFORMATION
  Report Type: Spontaneous
  Country: US (occurrence: US)
  Receive Date: 20170717
  Receipt Date: 20170717
  Transmission Date: 20171127
  Serious: No
  Sender: FDA-Public Use
  Company Number: US-PFIZER INC-2017305935

PATIENT
  Sex: Female

DRUGS (2)
  1. XELJANZ [Suspect]
     Active Substance: TOFACITINIB CITRATE
     Dosage: 5 MG, 2X/DAY
  2. LISINOPRIL. [Suspect]
     Active Substance: LISINOPRIL
     Dosage: 20 MG, DAILY

REACTIONS (6)
  - Joint range of motion decreased [Unknown]
  - Joint stiffness [Unknown]
  - Blood pressure increased [Unknown]
  - Arthralgia [Unknown]
  - Tenderness [Unknown]
  - Pain [Unknown]
